FAERS Safety Report 6111863-6 (Version None)
Quarter: 2009Q1

REPORT INFORMATION
  Report Type: 
  Country: None (occurrence: None)
  Receive Date: 20090311
  Receipt Date: 20090303
  Transmission Date: 20090719
  Serious: Yes (Hospitalization)
  Sender: FDA-Public Use
  Company Number: FR-BRISTOL-MYERS SQUIBB COMPANY-14538516

PATIENT
  Age: 59 Year
  Sex: Male

DRUGS (4)
  1. CISPLATIN [Suspect]
     Indication: HEAD AND NECK CANCER
     Dosage: RECENT INFUSION: 24FEB09
     Route: 042
     Dates: start: 20081208
  2. CETUXIMAB [Suspect]
     Indication: HEAD AND NECK CANCER
     Dosage: 5MG/ML. MOST RECENT INFUSION: 23-FEB-2009 TEMPORARILY DISCONTINUED: 02-MAR-2009
     Route: 042
     Dates: start: 20081208, end: 20090223
  3. CILENGITIDE [Suspect]
     Indication: HEAD AND NECK CANCER
     Dosage: RECENT INFUSION: 26FEB09
     Route: 042
     Dates: start: 20081208, end: 20090226
  4. FLUOROURACIL [Suspect]
     Indication: HEAD AND NECK CANCER
     Dosage: MOST RECENT INFUSION: 23-FEB-2009
     Route: 042
     Dates: start: 20081208

REACTIONS (1)
  - MUCOSAL INFLAMMATION [None]
